FAERS Safety Report 8607947-0 (Version None)
Quarter: 2012Q3

REPORT INFORMATION
  Report Type: 
  Country: None (occurrence: None)
  Receive Date: 20120821
  Receipt Date: 20120810
  Transmission Date: 20120928
  Serious: Yes (Other)
  Sender: FDA-Public Use
  Company Number: FR-MILLENNIUM PHARMACEUTICALS, INC.-2012-05816

PATIENT

DRUGS (12)
  1. VELCADE [Suspect]
     Indication: MULTIPLE MYELOMA
     Dosage: UNK MG, UNK
     Route: 065
     Dates: start: 20120123
  2. AMOXICILLIN [Concomitant]
     Indication: PROPHYLAXIS
     Dosage: UNK
     Route: 048
     Dates: start: 20120123
  3. VELCADE [Suspect]
     Dosage: 1 UNK, UNK
     Route: 065
     Dates: start: 20120301, end: 20120802
  4. INNOHEP [Concomitant]
     Indication: PROPHYLAXIS
     Dosage: UNK
     Route: 058
     Dates: start: 20120123
  5. MORPHINE SULFATE [Concomitant]
     Indication: PAIN
     Dosage: 10 MG, UNK
     Route: 048
     Dates: start: 20111201
  6. NEXIUM [Concomitant]
     Indication: PROPHYLAXIS
     Dosage: UNK
     Route: 048
     Dates: start: 20120723
  7. XATRAL                             /00975301/ [Concomitant]
     Dosage: 10 UNK, UNK
     Route: 048
     Dates: start: 20120618
  8. DEXAMETHASONE [Suspect]
     Indication: MULTIPLE MYELOMA
     Dosage: 10 MG, UNK
     Route: 065
     Dates: start: 20120123, end: 20120803
  9. POTASSIUM CHLORIDE [Concomitant]
     Indication: PROPHYLAXIS
     Dosage: UNK
     Route: 048
     Dates: start: 20120501
  10. REVLIMID [Suspect]
     Indication: MULTIPLE MYELOMA
     Dosage: 25 MG, UNK
     Route: 065
     Dates: start: 20120123, end: 20120805
  11. BACTRIM [Concomitant]
     Indication: PROPHYLAXIS
     Dosage: UNK
     Route: 048
     Dates: start: 20120123
  12. LEXOMIL [Concomitant]
     Dosage: UNK
     Route: 048
     Dates: start: 20120723

REACTIONS (2)
  - THROMBOCYTOPENIA [None]
  - OVERDOSE [None]
